FAERS Safety Report 6526650-4 (Version None)
Quarter: 2010Q1

REPORT INFORMATION
  Report Type: 
  Country: None (occurrence: None)
  Receive Date: 20100105
  Receipt Date: 20091222
  Transmission Date: 20100710
  Serious: Yes (Disabling)
  Sender: FDA-Public Use
  Company Number: NL-AMGEN-US382586

PATIENT
  Sex: Male

DRUGS (2)
  1. ENBREL [Suspect]
     Indication: PSORIATIC ARTHROPATHY
     Dosage: UNK DOSE AND FREQUENCY
  2. ENBREL [Suspect]
     Dosage: UNK DOSE AND FREQUENCY

REACTIONS (2)
  - SENSORY LOSS [None]
  - TOXIC NEUROPATHY [None]
